FAERS Safety Report 20364154 (Version 1)
Quarter: 2022Q1

REPORT INFORMATION
  Report Type: Spontaneous
  Country: US (occurrence: None)
  Receive Date: 20220121
  Receipt Date: 20220121
  Transmission Date: 20220423
  Serious: No
  Sender: FDA-Public Use
  Company Number: 2022A033131

PATIENT
  Age: 74 Year
  Sex: Male
  Weight: 108.9 kg

DRUGS (1)
  1. FASENRA [Suspect]
     Active Substance: BENRALIZUMAB
     Indication: Product used for unknown indication
     Dosage: 30MG/ML MONTHLY
     Route: 058
     Dates: start: 20211215

REACTIONS (6)
  - Feeling abnormal [Unknown]
  - Incorrect dose administered by device [Unknown]
  - Inappropriate schedule of product administration [Unknown]
  - Wrong technique in device usage process [Unknown]
  - Product after taste [Unknown]
  - Device leakage [Unknown]

NARRATIVE: CASE EVENT DATE: 20220119
